FAERS Safety Report 9310234 (Version 2)
Quarter: 2013Q3

REPORT INFORMATION
  Report Type: Report from Study
  Country: CA (occurrence: CA)
  Receive Date: 20130527
  Receipt Date: 20130721
  Transmission Date: 20140515
  Serious: Yes (Other)
  Sender: FDA-Public Use
  Company Number: PHHY2013CA052256

PATIENT
  Sex: Male

DRUGS (1)
  1. CLOZARIL [Suspect]
     Dosage: UNK UKN, UNK
     Dates: start: 19921215

REACTIONS (5)
  - Prostate cancer recurrent [Unknown]
  - Renal cancer recurrent [Unknown]
  - Gastrointestinal carcinoma [Unknown]
  - Haemoglobin decreased [Unknown]
  - Agranulocytosis [Unknown]
